FAERS Safety Report 17773378 (Version 5)
Quarter: 2021Q2

REPORT INFORMATION
  Report Type: Report from Study
  Country: US (occurrence: US)
  Receive Date: 20200512
  Receipt Date: 20210428
  Transmission Date: 20210716
  Serious: No
  Sender: FDA-Public Use
  Company Number: NVSC2020US129021

PATIENT
  Sex: Male

DRUGS (3)
  1. STELARA [Concomitant]
     Active Substance: USTEKINUMAB
     Indication: PRODUCT USED FOR UNKNOWN INDICATION
     Dosage: UNK
     Route: 065
  2. COSENTYX [Suspect]
     Active Substance: SECUKINUMAB
     Indication: PSORIASIS
     Dosage: 300 MG, QMO
     Route: 058
  3. COSENTYX [Suspect]
     Active Substance: SECUKINUMAB
     Route: 058

REACTIONS (3)
  - Psoriasis [Unknown]
  - Pigmentation disorder [Unknown]
  - Drug ineffective [Unknown]
